FAERS Safety Report 5412480-3 (Version None)
Quarter: 2007Q3

REPORT INFORMATION
  Report Type: 
  Country: None (occurrence: None)
  Receive Date: 20070809
  Receipt Date: 20070727
  Transmission Date: 20080115
  Serious: Yes (Hospitalization)
  Sender: FDA-Public Use
  Company Number: CIO07012227

PATIENT
  Sex: Female

DRUGS (10)
  1. CREST TOOTHPASTE, FORM/ VERSION FLAVOR UNKNOWN(POTASIUM NITRATE UNKNOW [Suspect]
     Dosage: 1 APPLIC; INTRAORAL
  2. ' [Concomitant]
  3. ' [Concomitant]
  4. ' [Concomitant]
  5. ' [Concomitant]
  6. ' [Concomitant]
  7. ' [Concomitant]
  8. ' [Concomitant]
  9. ' [Concomitant]
  10. ' [Concomitant]

REACTIONS (4)
  - DYSGEUSIA [None]
  - GASTRIC DISORDER [None]
  - IMPAIRED WORK ABILITY [None]
  - PHARMACEUTICAL PRODUCT COMPLAINT [None]
